FAERS Safety Report 14291664 (Version 1)
Quarter: 2017Q4

REPORT INFORMATION
  Report Type: Spontaneous
  Country: US (occurrence: US)
  Receive Date: 20171215
  Receipt Date: 20171215
  Transmission Date: 20180321
  Serious: No
  Sender: FDA-Public Use
  Company Number: US-NOVOPROD-539771

PATIENT
  Age: 81 Year
  Sex: Female
  Weight: 91.16 kg

DRUGS (2)
  1. LASIX [Concomitant]
     Active Substance: FUROSEMIDE
     Indication: DIURETIC THERAPY
  2. LEVEMIR [Suspect]
     Active Substance: INSULIN DETEMIR
     Indication: TYPE 2 DIABETES MELLITUS
     Dosage: 20 U, UNK
     Route: 058
     Dates: start: 2014

REACTIONS (5)
  - Peripheral swelling [Recovering/Resolving]
  - Asthenia [Recovering/Resolving]
  - Condition aggravated [Recovering/Resolving]
  - Blood glucose decreased [Recovering/Resolving]
  - Disorientation [Unknown]

NARRATIVE: CASE EVENT DATE: 201701
